FAERS Safety Report 5641681-4 (Version None)
Quarter: 2008Q1

REPORT INFORMATION
  Report Type: 
  Country: None (occurrence: None)
  Receive Date: 20080227
  Receipt Date: 20080218
  Transmission Date: 20080703
  Serious: Yes (Death, Life-Threatening, Hospitalization, Other)
  Sender: FDA-Public Use
  Company Number: LY-ABBOTT-08R-097-0438785-00

PATIENT
  Sex: Female
  Weight: 0.9 kg

DRUGS (1)
  1. SURVANTA [Suspect]
     Indication: DRUG USE FOR UNKNOWN INDICATION
     Dosage: 4ML/KG NOT LESS THAN 6 HOURS
     Route: 007
     Dates: start: 20080207, end: 20080207

REACTIONS (3)
  - BLOOD GLUCOSE INCREASED [None]
  - BRADYCARDIA [None]
  - SEPTIC SHOCK [None]
